FAERS Safety Report 18959300 (Version 1)
Quarter: 2021Q1

REPORT INFORMATION
  Report Type: Spontaneous
  Country: TH (occurrence: TH)
  Receive Date: 20210302
  Receipt Date: 20210302
  Transmission Date: 20210420
  Serious: Yes (Other)
  Sender: FDA-Public Use
  Company Number: TH-COEPTIS PHARMACEUTICALS, INC.-COE-2021-000019

PATIENT
  Age: 47 Year
  Sex: Male

DRUGS (7)
  1. AMLODIPINE [Suspect]
     Active Substance: AMLODIPINE BESYLATE
  2. METFORMIN [Concomitant]
     Active Substance: METFORMIN HYDROCHLORIDE
  3. SIMVASTATIN. [Suspect]
     Active Substance: SIMVASTATIN
  4. GLIPIZIDE. [Concomitant]
     Active Substance: GLIPIZIDE
  5. SIMVASTATIN. [Suspect]
     Active Substance: SIMVASTATIN
  6. TURMERIC POWDER [Suspect]
     Active Substance: HERBALS\TURMERIC
     Dosage: ONE TEASPOONFUL
  7. LOSARTAN. [Concomitant]
     Active Substance: LOSARTAN

REACTIONS (4)
  - Herbal interaction [Recovering/Resolving]
  - Rhabdomyolysis [Recovering/Resolving]
  - Hepatitis [Recovering/Resolving]
  - Drug interaction [Recovering/Resolving]
